FAERS Safety Report 17537485 (Version 3)
Quarter: 2021Q4

REPORT INFORMATION
  Report Type: Spontaneous
  Country: US (occurrence: US)
  Receive Date: 20200313
  Receipt Date: 20211221
  Transmission Date: 20220303
  Serious: No
  Sender: FDA-Public Use
  Company Number: US-VERTEX PHARMACEUTICALS-2020-004688

PATIENT
  Sex: Female

DRUGS (15)
  1. TRIKAFTA [Suspect]
     Active Substance: ELEXACAFTOR\IVACAFTOR\TEZACAFTOR
     Indication: Cystic fibrosis
     Dosage: 2 TABLETS AM; 1 TABLET PM
     Route: 048
     Dates: start: 201912
  2. TRIKAFTA [Suspect]
     Active Substance: ELEXACAFTOR\IVACAFTOR\TEZACAFTOR
     Dosage: 2 ORANGE TABS AM; NO BLUE TABS
     Route: 048
  3. AZTREONAM LYSINE [Suspect]
     Active Substance: AZTREONAM LYSINE
     Indication: Cystic fibrosis
     Dosage: 75 MG, TID
     Dates: start: 20140719
  4. AZTREONAM LYSINE [Suspect]
     Active Substance: AZTREONAM LYSINE
     Indication: Pseudomonas infection
  5. PULMOZYME [Concomitant]
     Active Substance: DORNASE ALFA
  6. TOBRAMYCIN [Concomitant]
     Active Substance: TOBRAMYCIN
  7. CAYSTON [Concomitant]
     Active Substance: AZTREONAM
  8. DULERA [Concomitant]
     Active Substance: FORMOTEROL FUMARATE DIHYDRATE\MOMETASONE FUROATE
  9. LEVOMEFOLATE CALCIUM [Concomitant]
     Active Substance: LEVOMEFOLATE CALCIUM
  10. BUSPIRONE HCL [Concomitant]
     Active Substance: BUSPIRONE HYDROCHLORIDE
  11. CLONAZEPAM [Concomitant]
     Active Substance: CLONAZEPAM
  12. LEVOCETIRIZINE [Concomitant]
     Active Substance: LEVOCETIRIZINE
  13. XHANCE [Concomitant]
     Active Substance: FLUTICASONE PROPIONATE
  14. VIIBRYD [Concomitant]
     Active Substance: VILAZODONE HYDROCHLORIDE
  15. URSODIOL [Concomitant]
     Active Substance: URSODIOL

REACTIONS (4)
  - Rash [Recovered/Resolved]
  - Cough [Recovered/Resolved]
  - Eating disorder [Not Recovered/Not Resolved]
  - Insomnia [Unknown]
